FAERS Safety Report 17816473 (Version 5)
Quarter: 2024Q2

REPORT INFORMATION
  Report Type: Spontaneous
  Country: US (occurrence: US)
  Receive Date: 20200522
  Receipt Date: 20240403
  Transmission Date: 20240716
  Serious: Yes (Other)
  Sender: FDA-Public Use
  Company Number: US-PFIZER INC-2020203224

PATIENT
  Age: 83 Year
  Sex: Female
  Weight: 86.168 kg

DRUGS (1)
  1. XELJANZ [Suspect]
     Active Substance: TOFACITINIB CITRATE
     Dosage: 5 MG

REACTIONS (8)
  - Glaucoma [Unknown]
  - Pain [Unknown]
  - Loss of personal independence in daily activities [Unknown]
  - Confusional state [Unknown]
  - Memory impairment [Unknown]
  - Arthritis [Unknown]
  - Pain in extremity [Unknown]
  - Bradykinesia [Unknown]
